FAERS Safety Report 26208754 (Version 1)
Quarter: 2025Q4

REPORT INFORMATION
  Report Type: Spontaneous
  Country: US (occurrence: None)
  Receive Date: 20251228
  Receipt Date: 20251228
  Transmission Date: 20260118
  Serious: No
  Sender: FDA-CTU
  Company Number: None

PATIENT
  Age: 69 Year
  Sex: Male
  Weight: 68.85 kg

DRUGS (6)
  1. HIZENTRA [Suspect]
     Active Substance: HUMAN IMMUNOGLOBULIN G
     Indication: Primary immunodeficiency syndrome
     Dosage: OTHER QUANTITY : 1 1;?OTHER FREQUENCY : 1 TIME PER WEEK;?STRENGTH: 20% PFS (10GM TOTAL 0.2GM/ML G GRAM(S)
     Route: 058
     Dates: start: 20251124, end: 20251223
  2. Gabapentin 700 mg po q HS [Concomitant]
  3. VITAMINS [Concomitant]
     Active Substance: VITAMINS
  4. Calcium tablet with Vitamin D [Concomitant]
  5. IBUPROFEN [Concomitant]
     Active Substance: IBUPROFEN
  6. ACETAMINOPHEN [Concomitant]
     Active Substance: ACETAMINOPHEN

REACTIONS (3)
  - Influenza like illness [None]
  - Drug hypersensitivity [None]
  - Skin exfoliation [None]

NARRATIVE: CASE EVENT DATE: 20251223
